FAERS Safety Report 7300433-X (Version None)
Quarter: 2011Q1

REPORT INFORMATION
  Report Type: 
  Country: None (occurrence: None)
  Receive Date: 20110217
  Receipt Date: 20110215
  Transmission Date: 20110831
  Serious: Yes (Life-Threatening, Other)
  Sender: FDA-Public Use
  Company Number: PHHO2011DE01659

PATIENT
  Sex: Male
  Weight: 84 kg

DRUGS (6)
  1. FTY [Suspect]
     Dosage: 0.5 MG, QD
     Route: 048
     Dates: end: 20110120
  2. BISOPROLOL RATIOPHARM [Concomitant]
     Indication: HYPERTENSION
     Dosage: UNK
  3. ASPIRIN [Concomitant]
     Indication: THROMBOSIS PROPHYLAXIS
     Dosage: UNK
  4. FTY [Suspect]
     Indication: MULTIPLE SCLEROSIS
     Dosage: DOSE BLINDED
     Route: 048
     Dates: start: 20100326
  5. INEGY [Concomitant]
     Indication: PROPHYLAXIS
     Dosage: UNK
  6. OMEPRAZOLE [Concomitant]
     Indication: PROPHYLAXIS
     Dosage: UNK

REACTIONS (11)
  - METASTASES TO LYMPH NODES [None]
  - NEOPLASM MALIGNANT [None]
  - BACK PAIN [None]
  - BONE PAIN [None]
  - MUSCLE SPASMS [None]
  - LYMPHADENOPATHY [None]
  - LYMPHOMA [None]
  - DECREASED APPETITE [None]
  - BONE NEOPLASM MALIGNANT [None]
  - MALIGNANT URINARY TRACT NEOPLASM [None]
  - CONSTIPATION [None]
